FAERS Safety Report 8089411-3 (Version None)
Quarter: 2012Q1

REPORT INFORMATION
  Report Type: 
  Country: None (occurrence: None)
  Receive Date: 20120128
  Receipt Date: 20110728
  Transmission Date: 20120608
  Serious: No
  Sender: FDA-Public Use
  Company Number: US-ABBOTT-11P-163-0723071-00

PATIENT
  Sex: Female
  Weight: 57.658 kg

DRUGS (9)
  1. HUMIRA [Suspect]
     Indication: CROHN'S DISEASE
     Route: 058
     Dates: start: 20090101
  2. ALOE PLANT GEL [Concomitant]
     Indication: DRUG THERAPY
  3. HUMIRA [Suspect]
     Dates: start: 20110629
  4. MULTI-VITAMINS [Concomitant]
     Indication: VITAMIN SUPPLEMENTATION
  5. LOMOTIL [Concomitant]
     Indication: CROHN'S DISEASE
  6. CALCIUM [Concomitant]
     Indication: PRODUCT USED FOR UNKNOWN INDICATION
  7. CALTRATE [Concomitant]
     Indication: MINERAL SUPPLEMENTATION
  8. HUMIRA [Suspect]
     Dates: start: 20110207, end: 20110628
  9. VITAMIN B-12 [Concomitant]
     Indication: SUPPLEMENTATION THERAPY

REACTIONS (43)
  - PSYCHIATRIC SYMPTOM [None]
  - MUSCLE TWITCHING [None]
  - PAIN IN EXTREMITY [None]
  - MUSCLE SPASMS [None]
  - DERMATITIS [None]
  - OCULAR HYPERAEMIA [None]
  - DYSSTASIA [None]
  - ORAL PAIN [None]
  - FEMALE GENITAL TRACT FISTULA [None]
  - ACQUIRED OESOPHAGEAL WEB [None]
  - MENSTRUATION IRREGULAR [None]
  - ABDOMINAL PAIN UPPER [None]
  - STOMATITIS [None]
  - PERSONALITY CHANGE [None]
  - WOUND [None]
  - HEAT EXHAUSTION [None]
  - DRUG EFFECT INCREASED [None]
  - SKIN LESION [None]
  - C-REACTIVE PROTEIN INCREASED [None]
  - OESOPHAGEAL STENOSIS [None]
  - LEUKOCYTOCLASTIC VASCULITIS [None]
  - FATIGUE [None]
  - EYE PAIN [None]
  - LOOSE TOOTH [None]
  - TREMOR [None]
  - HEADACHE [None]
  - BLOOD IRON DECREASED [None]
  - SKIN DISCOLOURATION [None]
  - MOOD ALTERED [None]
  - HAEMOGLOBIN DECREASED [None]
  - NEUTROPHILIC PANNICULITIS [None]
  - ARTHRALGIA [None]
  - MOOD SWINGS [None]
  - GAIT DISTURBANCE [None]
  - HAEMORRHOIDS [None]
  - LOSS OF CONSCIOUSNESS [None]
  - ASTHENIA [None]
  - BALANCE DISORDER [None]
  - DIZZINESS [None]
  - NODULE [None]
  - GASTROOESOPHAGEAL REFLUX DISEASE [None]
  - INCORRECT DRUG ADMINISTRATION DURATION [None]
  - DECREASED APPETITE [None]
